FAERS Safety Report 12233131 (Version 1)
Quarter: 2016Q2

REPORT INFORMATION
  Report Type: Spontaneous
  Country: US (occurrence: US)
  Receive Date: 20160404
  Receipt Date: 20160404
  Transmission Date: 20160815
  Serious: No
  Sender: FDA-Public Use
  Company Number: US-AMGEN-USASP2016039728

PATIENT
  Age: 63 Year
  Sex: Male

DRUGS (4)
  1. ENBREL [Suspect]
     Active Substance: ETANERCEPT
     Indication: PSORIASIS
  2. ENBREL [Suspect]
     Active Substance: ETANERCEPT
     Indication: PSORIATIC ARTHROPATHY
     Dosage: 25 MG, 2 TIMES/WK
     Route: 058
     Dates: start: 2006
  3. ENALAPRIL [Concomitant]
     Active Substance: ENALAPRIL
     Dosage: UNK
  4. ASA [Concomitant]
     Active Substance: ASPIRIN
     Dosage: UNK

REACTIONS (2)
  - Drug effect decreased [Unknown]
  - Arthralgia [Unknown]
